FAERS Safety Report 7581922-X (Version None)
Quarter: 2011Q2

REPORT INFORMATION
  Report Type: 
  Country: None (occurrence: None)
  Receive Date: 20110629
  Receipt Date: 20110624
  Transmission Date: 20111010
  Serious: Yes (Death, Hospitalization, Other)
  Sender: FDA-Public Use
  Company Number: US-CELGENEUS-163-21880-11050797

PATIENT
  Sex: Male

DRUGS (7)
  1. PERCOCET [Concomitant]
     Route: 065
  2. CALCIUM CARBONATE [Concomitant]
     Route: 065
  3. REVLIMID [Suspect]
     Indication: MULTIPLE MYELOMA
     Dosage: 10 MILLIGRAM
     Route: 048
     Dates: start: 20080919
  4. GLYBURIDE [Concomitant]
     Route: 065
  5. FENTANYL [Concomitant]
     Route: 065
  6. INSULIN [Concomitant]
     Route: 065
  7. POTASSIUM [Concomitant]
     Route: 065

REACTIONS (4)
  - BACK PAIN [None]
  - PAIN IN EXTREMITY [None]
  - DEATH [None]
  - FALL [None]
